FAERS Safety Report 14513968 (Version 1)
Quarter: 2018Q1

REPORT INFORMATION
  Report Type: Spontaneous
  Country: US (occurrence: US)
  Receive Date: 20180208
  Receipt Date: 20180208
  Transmission Date: 20180509
  Serious: Yes (Other)
  Sender: FDA-Public Use
  Company Number: None

PATIENT
  Age: 50 Year
  Sex: Male
  Weight: 108 kg

DRUGS (8)
  1. NITRO [Concomitant]
     Active Substance: NITROGLYCERIN
  2. AMLODIPINE [Concomitant]
     Active Substance: AMLODIPINE BESYLATE
  3. CLOPIDOGREL [Suspect]
     Active Substance: CLOPIDOGREL BISULFATE
     Indication: DEVICE OCCLUSION
     Dosage: ?          QUANTITY:30 TABLET(S);?
     Route: 048
     Dates: start: 20171215, end: 20180115
  4. VITAMIN D [Concomitant]
     Active Substance: CHOLECALCIFEROL
  5. CLOPIDOGREL [Suspect]
     Active Substance: CLOPIDOGREL BISULFATE
     Indication: CORONARY ARTERIAL STENT INSERTION
     Dosage: ?          QUANTITY:30 TABLET(S);?
     Route: 048
     Dates: start: 20171215, end: 20180115
  6. COENZYME Q10 [Concomitant]
     Active Substance: UBIDECARENONE
  7. ATENENOL [Concomitant]
  8. ASPIRIN. [Concomitant]
     Active Substance: ASPIRIN

REACTIONS (10)
  - Pain [None]
  - Muscle fatigue [None]
  - Insomnia [None]
  - Hypersensitivity [None]
  - Impaired work ability [None]
  - Discomfort [None]
  - Drug dose omission [None]
  - Angina pectoris [None]
  - Chest discomfort [None]
  - Wrong drug administered [None]

NARRATIVE: CASE EVENT DATE: 20180101
